FAERS Safety Report 12673673 (Version 1)
Quarter: 2016Q3

REPORT INFORMATION
  Report Type: Report from Study
  Country: BR (occurrence: BR)
  Receive Date: 20160822
  Receipt Date: 20160822
  Transmission Date: 20161109
  Serious: Yes (Other)
  Sender: FDA-Public Use
  Company Number: BR-JNJFOC-20160814901

PATIENT
  Age: 32 Year
  Sex: Female

DRUGS (3)
  1. AZATHIOPRINE. [Concomitant]
     Active Substance: AZATHIOPRINE
  2. REMICADE [Suspect]
     Active Substance: INFLIXIMAB
     Indication: CROHN^S DISEASE
     Route: 042
     Dates: start: 20151126
  3. REMICADE [Suspect]
     Active Substance: INFLIXIMAB
     Indication: CROHN^S DISEASE
     Route: 042
     Dates: start: 20160702

REACTIONS (2)
  - Crohn^s disease [Recovered/Resolved]
  - Sinusitis [Unknown]

NARRATIVE: CASE EVENT DATE: 201606
